FAERS Safety Report 19654319 (Version 1)
Quarter: 2021Q3

REPORT INFORMATION
  Report Type: Spontaneous
  Country: PT (occurrence: PT)
  Receive Date: 20210804
  Receipt Date: 20210804
  Transmission Date: 20211014
  Serious: Yes (Hospitalization)
  Sender: FDA-Public Use
  Company Number: PT-CELLTRION INC.-2021PT010342

PATIENT

DRUGS (6)
  1. METHOTREXATE. [Suspect]
     Active Substance: METHOTREXATE
     Indication: CROHN^S DISEASE
     Dosage: UNK
  2. INFLIXIMAB (UNKNOWN) [Suspect]
     Active Substance: INFLIXIMAB
     Indication: CROHN^S DISEASE
     Dosage: 5 MG/KG AS MONOTHERAPY
  3. INFLIXIMAB (UNKNOWN) [Suspect]
     Active Substance: INFLIXIMAB
     Dosage: 10 MG/KG, THE INTERVAL TO 6/6 WEEKS
     Dates: start: 2015
  4. INFLIXIMAB (UNKNOWN) [Suspect]
     Active Substance: INFLIXIMAB
     Dosage: 5 MG/KG
  5. METHOTREXATE. [Suspect]
     Active Substance: METHOTREXATE
     Dosage: 7.5 MG
  6. 6MP [Suspect]
     Active Substance: MERCAPTOPURINE
     Indication: CROHN^S DISEASE
     Dosage: IN COMBINATION WITH INFLXIMAB

REACTIONS (9)
  - Anal abscess [Unknown]
  - Pseudopolyp [Unknown]
  - Pyrexia [Unknown]
  - Malnutrition [Unknown]
  - Oedema [Unknown]
  - Proctalgia [Unknown]
  - Mucosal ulceration [Unknown]
  - Purulent discharge [Unknown]
  - Overdose [Unknown]

NARRATIVE: CASE EVENT DATE: 201403
